FAERS Safety Report 6297768-9 (Version None)
Quarter: 2009Q3

REPORT INFORMATION
  Report Type: 
  Country: None (occurrence: None)
  Receive Date: 20090805
  Receipt Date: 20090730
  Transmission Date: 20100115
  Serious: Yes (Death, Other)
  Sender: FDA-Public Use
  Company Number: US-PFIZER INC-2009236469

PATIENT
  Sex: Female
  Weight: 44.452 kg

DRUGS (16)
  1. REVATIO [Suspect]
     Indication: PULMONARY HYPERTENSION
     Dates: start: 20090501
  2. ALBUTEROL [Concomitant]
  3. ATIVAN [Concomitant]
  4. COUMADIN [Concomitant]
  5. DESYREL [Concomitant]
  6. IMDUR [Concomitant]
  7. LANOXIN [Concomitant]
  8. LASIX [Concomitant]
  9. POTASSIUM CHLORIDE [Concomitant]
  10. OMEPRAZOLE [Concomitant]
  11. PULMICORT-100 [Concomitant]
  12. TENORMIN [Concomitant]
  13. TRACLEER [Concomitant]
  14. TRICOR [Concomitant]
  15. ZOCOR [Concomitant]
  16. ARFORMOTEROL INHALED [Concomitant]

REACTIONS (5)
  - CHEST PAIN [None]
  - DEATH [None]
  - DIZZINESS [None]
  - GAIT DISTURBANCE [None]
  - MALAISE [None]
